FAERS Safety Report 18368683 (Version 3)
Quarter: 2021Q3

REPORT INFORMATION
  Report Type: Report from Study
  Country: None (occurrence: CA)
  Receive Date: 20201010
  Receipt Date: 20210721
  Transmission Date: 20211014
  Serious: Yes (Hospitalization, Other)
  Sender: FDA-Public Use
  Company Number: CA-ABBVIE-20K-028-3603929-00

PATIENT
  Age: 72 Year
  Sex: Female

DRUGS (3)
  1. RINVOQ [Suspect]
     Active Substance: UPADACITINIB
     Indication: RHEUMATOID ARTHRITIS
     Route: 048
     Dates: start: 20201003, end: 2020
  2. RINVOQ [Suspect]
     Active Substance: UPADACITINIB
     Route: 048
     Dates: start: 20200310, end: 2021
  3. RINVOQ [Suspect]
     Active Substance: UPADACITINIB
     Route: 048
     Dates: start: 2021

REACTIONS (6)
  - Osteoarthritis [Unknown]
  - Gait disturbance [Unknown]
  - Scoliosis surgery [Unknown]
  - Hip arthroplasty [Unknown]
  - Pain [Unknown]
  - Posture abnormal [Unknown]

NARRATIVE: CASE EVENT DATE: 202010
